FAERS Safety Report 9194364 (Version 2)
Quarter: 2013Q3

REPORT INFORMATION
  Report Type: Spontaneous
  Country: US (occurrence: US)
  Receive Date: 20130327
  Receipt Date: 20130906
  Transmission Date: 20140515
  Serious: Yes (Hospitalization)
  Sender: FDA-Public Use
  Company Number: US-B.I. PHARMACEUTICALS,INC./RIDGEFIELD-2013-BI-07630BP

PATIENT
  Sex: Male
  Weight: 81.65 kg

DRUGS (17)
  1. PRADAXA [Suspect]
     Indication: ATRIAL FIBRILLATION
     Dosage: 300 MG
     Route: 048
     Dates: start: 20101109, end: 20121203
  2. MULTIVITAMIN [Concomitant]
  3. ALISKIREN [Concomitant]
     Dosage: 300 MG
  4. PROTONIX [Concomitant]
     Dosage: 40 MG
     Route: 048
  5. VALSARTAN [Concomitant]
     Dosage: 325 MG
  6. SIMVASTATIN [Concomitant]
     Dosage: 20 MG
  7. ZETIA [Concomitant]
     Dosage: 10 MG
  8. TEKTURNA [Concomitant]
     Dosage: 300 MG
     Route: 048
  9. MULTAQ [Concomitant]
     Dosage: 800 MG
     Route: 048
  10. ATACAND [Concomitant]
     Dosage: 32 MG
     Route: 048
  11. LOTREL [Concomitant]
     Route: 048
  12. NIASPAN [Concomitant]
     Dosage: 1000 MG
     Route: 048
  13. ASPIRIN [Concomitant]
     Dosage: 81 MG
     Route: 048
  14. CO-Q10 [Concomitant]
     Dosage: 400 MG
     Route: 048
  15. LUTEIN [Concomitant]
     Dosage: 20 MG
     Route: 048
  16. VYTORIN [Concomitant]
     Route: 048
  17. PROSCAR [Concomitant]
     Dosage: 5 MG
     Route: 048

REACTIONS (6)
  - Melaena [Unknown]
  - Anaemia [Recovered/Resolved]
  - Gastric ulcer [Unknown]
  - Gastrointestinal haemorrhage [Recovered/Resolved]
  - Lower gastrointestinal haemorrhage [Recovered/Resolved]
  - Gingival bleeding [Unknown]
